FAERS Safety Report 4337231-5 (Version None)
Quarter: 2004Q2

REPORT INFORMATION
  Report Type: 
  Country: None (occurrence: None)
  Receive Date: 20040408
  Receipt Date: 20040325
  Transmission Date: 20050107
  Serious: Yes (Death, Life-Threatening, Hospitalization, Disabling)
  Sender: FDA-Public Use
  Company Number: IN-SHR-04-021307

PATIENT
  Age: 56 Year
  Sex: Male

DRUGS (3)
  1. FLUDARA [Suspect]
     Indication: CHRONIC LYMPHOCYTIC LEUKAEMIA
     Dosage: 30 MG/M2 (3 CYCLES OF 3 DAYS), INTRAVENOUS
     Route: 042
     Dates: start: 20030901, end: 20031201
  2. CYCLOPHOSPHAMIDE [Concomitant]
  3. FOLIC ACID [Concomitant]

REACTIONS (2)
  - HISTIOCYTOSIS HAEMATOPHAGIC [None]
  - LEUKOPENIA [None]
